FAERS Safety Report 9649850 (Version 2)
Quarter: 2013Q4

REPORT INFORMATION
  Report Type: Spontaneous
  Country: US (occurrence: US)
  Receive Date: 20131028
  Receipt Date: 20131028
  Transmission Date: 20140711
  Serious: Yes (Other)
  Sender: FDA-Public Use
  Company Number: US-NAPPMUNDI-USA-2011-0074499

PATIENT
  Age: 26 Year
  Sex: Female

DRUGS (8)
  1. OXYCONTIN TABLETS [Suspect]
     Indication: DRUG ABUSE
     Route: 048
  2. MORPHINE SULFATE (SIMILAR TO NDA 19-516) [Suspect]
     Indication: DRUG ABUSE
  3. VICODIN [Suspect]
     Indication: DRUG ABUSE
  4. PERCOCET /00446701/ [Suspect]
     Indication: DRUG ABUSE
  5. XANAX [Suspect]
     Indication: DRUG ABUSE
  6. VALIUM /00017001/ [Suspect]
     Indication: DRUG ABUSE
  7. KLONOPIN [Suspect]
     Indication: DRUG ABUSE
  8. METHADONE [Suspect]
     Indication: DRUG ABUSE

REACTIONS (1)
  - Drug abuse [Recovering/Resolving]
